FAERS Safety Report 26051814 (Version 3)
Quarter: 2025Q4

REPORT INFORMATION
  Report Type: Spontaneous
  Country: US (occurrence: US)
  Receive Date: 20251117
  Receipt Date: 20251224
  Transmission Date: 20260117
  Serious: No
  Sender: AMGEN
  Company Number: US-AMGEN-USASP2025222900

PATIENT
  Age: 65 Year
  Sex: Female

DRUGS (4)
  1. REPATHA [Suspect]
     Active Substance: EVOLOCUMAB
     Indication: Blood cholesterol increased
     Dosage: 140 MILLIGRAM, Q2WK (Q 14 DAYS)
     Route: 058
  2. REPATHA [Suspect]
     Active Substance: EVOLOCUMAB
     Indication: Cerebral arteriosclerosis
  3. REPATHA [Suspect]
     Active Substance: EVOLOCUMAB
     Indication: Ill-defined disorder
  4. REPATHA [Suspect]
     Active Substance: EVOLOCUMAB
     Indication: Retinal aneurysm

REACTIONS (5)
  - Thyroid disorder [Unknown]
  - Cardiac monitoring [Unknown]
  - Device difficult to use [Unknown]
  - Drug dose omission by device [Unknown]
  - Accidental exposure to product [Unknown]

NARRATIVE: CASE EVENT DATE: 20251121
